FAERS Safety Report 6329098-0 (Version None)
Quarter: 2009Q3

REPORT INFORMATION
  Report Type: 
  Country: None (occurrence: None)
  Receive Date: 20090826
  Receipt Date: 20090814
  Transmission Date: 20100115
  Serious: Yes (Death, Hospitalization)
  Sender: FDA-Public Use
  Company Number: FR-BAYER-200928491GPV

PATIENT
  Age: 86 Year
  Sex: Male

DRUGS (6)
  1. CIFLOX [Suspect]
     Indication: DRUG USE FOR UNKNOWN INDICATION
     Dosage: UNIT DOSE: 500 MG
     Route: 048
     Dates: start: 20090603, end: 20090613
  2. PREVISCAN [Concomitant]
     Indication: DRUG USE FOR UNKNOWN INDICATION
     Dosage: UNIT DOSE: 20 MG
     Route: 048
     Dates: end: 20090725
  3. CARDENSIEL [Concomitant]
     Indication: DRUG USE FOR UNKNOWN INDICATION
     Dosage: UNIT DOSE: 2.5 MG
     Route: 048
     Dates: end: 20090725
  4. ZYLORIC [Concomitant]
     Indication: DRUG USE FOR UNKNOWN INDICATION
     Dosage: UNIT DOSE: 100 MG
     Route: 048
     Dates: end: 20090725
  5. GLUCOPHAGE [Concomitant]
     Indication: DRUG USE FOR UNKNOWN INDICATION
     Dosage: UNIT DOSE: 500 MG
     Route: 048
     Dates: end: 20090608
  6. EZETROL [Concomitant]
     Indication: DRUG USE FOR UNKNOWN INDICATION
     Dosage: UNIT DOSE: 10 MG
     Route: 048
     Dates: end: 20090608

REACTIONS (4)
  - LEUKOCYTOCLASTIC VASCULITIS [None]
  - PURPURA [None]
  - RENAL FAILURE ACUTE [None]
  - RENAL TUBULAR NECROSIS [None]
